FAERS Safety Report 5040534-2 (Version None)
Quarter: 2006Q2

REPORT INFORMATION
  Report Type: 
  Country: None (occurrence: None)
  Receive Date: 20060627
  Receipt Date: 20060627
  Transmission Date: 20061013
  Serious: Yes (Other)
  Sender: FDA-Public Use
  Company Number: None

PATIENT
  Age: 46 Year
  Sex: Male
  Weight: 81.6475 kg

DRUGS (1)
  1. CIPRO XR [Suspect]
     Indication: PROPHYLAXIS AGAINST DIARRHOEA
     Dosage: ONCE /DAY PO
     Route: 048
     Dates: start: 20060301, end: 20060304

REACTIONS (7)
  - ARTHRALGIA [None]
  - EPICONDYLITIS [None]
  - HAEMORRHAGE [None]
  - MYALGIA [None]
  - TENDON DISORDER [None]
  - TENDON RUPTURE [None]
  - TENDONITIS [None]
